FAERS Safety Report 9193917 (Version 2)
Quarter: 2013Q2

REPORT INFORMATION
  Report Type: Spontaneous
  Country: SG (occurrence: SG)
  Receive Date: 20130327
  Receipt Date: 20130404
  Transmission Date: 20140414
  Serious: Yes (Other)
  Sender: FDA-Public Use
  Company Number: SG-GLAXOSMITHKLINE-B0878298A

PATIENT
  Age: 20 Year
  Sex: Female

DRUGS (5)
  1. BENLYSTA [Suspect]
     Indication: PRODUCT USED FOR UNKNOWN INDICATION
     Dosage: 10MGK PER DAY
     Route: 042
     Dates: start: 20130305
  2. PREDNISONE [Concomitant]
     Dosage: 60MG PER DAY
     Route: 048
  3. CYCLOSPORIN [Concomitant]
     Dosage: 100MG PER DAY
     Route: 065
  4. HYDROXYCHLOROQUINE [Concomitant]
     Dosage: 200MG PER DAY
     Route: 065
  5. MYCOPHENOLATE MOFETIL [Concomitant]
     Dosage: 360MG PER DAY
     Route: 065

REACTIONS (1)
  - Leukopenia [Recovered/Resolved]
